FAERS Safety Report 20884719 (Version 1)
Quarter: 2022Q2

REPORT INFORMATION
  Report Type: Spontaneous
  Country: US (occurrence: None)
  Receive Date: 20220527
  Receipt Date: 20220527
  Transmission Date: 20220721
  Serious: No
  Sender: FDA-Public Use
  Company Number: None

PATIENT
  Sex: Female

DRUGS (1)
  1. EMGALITY [Suspect]
     Active Substance: GALCANEZUMAB-GNLM
     Indication: Migraine without aura
     Dosage: 120MG ONCE A MONTH SUBCUTANEOUS?
     Route: 058
     Dates: start: 202112

REACTIONS (2)
  - Therapy cessation [None]
  - Burning sensation [None]
